FAERS Safety Report 6113893-7 (Version None)
Quarter: 2009Q1

REPORT INFORMATION
  Report Type: 
  Country: None (occurrence: None)
  Receive Date: 20090312
  Receipt Date: 20080801
  Transmission Date: 20090719
  Serious: No
  Sender: FDA-Public Use
  Company Number: US-ABBOTT-08P-163-0467167-00

PATIENT
  Sex: Female
  Weight: 74.91 kg

DRUGS (4)
  1. LUPRON DEPOT [Suspect]
     Indication: ENDOMETRIOSIS
     Route: 030
     Dates: start: 20080625
  2. LUPRON DEPOT [Suspect]
     Route: 030
     Dates: start: 20080625
  3. LUPRON DEPOT [Suspect]
     Indication: ENDOMETRIOSIS
     Route: 030
     Dates: start: 20080529, end: 20080625
  4. LOW ESTREN SE BIRTH CONTROL PILLS [Concomitant]
     Indication: DRUG USE FOR UNKNOWN INDICATION
     Route: 048

REACTIONS (2)
  - DYSMENORRHOEA [None]
  - MENORRHAGIA [None]
